FAERS Safety Report 5711224-5 (Version None)
Quarter: 2008Q2

REPORT INFORMATION
  Report Type: 
  Country: None (occurrence: None)
  Receive Date: 20080421
  Receipt Date: 20080324
  Transmission Date: 20081010
  Serious: Yes (Other)
  Sender: FDA-Public Use
  Company Number: CA-ASTRAZENECA-2008UW07589

PATIENT
  Age: 63 Year
  Sex: Male

DRUGS (4)
  1. CRESTOR [Suspect]
     Indication: BLOOD CHOLESTEROL INCREASED
     Route: 048
     Dates: start: 20061201
  2. LORAZEPAM [Concomitant]
  3. DESIPRAMINE HCL [Concomitant]
  4. XALACOM [Concomitant]

REACTIONS (4)
  - FATIGUE [None]
  - HAEMANGIOMA [None]
  - MUSCLE SPASMS [None]
  - MYALGIA [None]
